FAERS Safety Report 14307280 (Version 1)
Quarter: 2017Q4

REPORT INFORMATION
  Report Type: Report from Study
  Country: CA (occurrence: CA)
  Receive Date: 20171220
  Receipt Date: 20171220
  Transmission Date: 20180321
  Serious: Yes (Other)
  Sender: FDA-Public Use
  Company Number: PHHY2017CA048786

PATIENT
  Sex: Male

DRUGS (3)
  1. EXJADE [Suspect]
     Active Substance: DEFERASIROX
     Indication: MYELODYSPLASTIC SYNDROME
  2. JADENU [Suspect]
     Active Substance: DEFERASIROX
     Indication: IRON OVERLOAD
     Dosage: 1 DF, QD
     Route: 048
     Dates: start: 20170511
  3. EXJADE [Suspect]
     Active Substance: DEFERASIROX
     Indication: ANAEMIA
     Dosage: 500 MG, QD
     Route: 048
     Dates: start: 20170303, end: 20170324

REACTIONS (14)
  - Drug intolerance [Unknown]
  - Oedema peripheral [Unknown]
  - Hypocalcaemia [Unknown]
  - Neck pain [Unknown]
  - Blood magnesium increased [Unknown]
  - Cardiac failure congestive [Unknown]
  - Cervical spinal stenosis [Unknown]
  - Throat irritation [Unknown]
  - Abdominal pain [Unknown]
  - Amnesia [Unknown]
  - Oedema [Unknown]
  - Fatigue [Unknown]
  - Serum ferritin increased [Unknown]
  - Feeling abnormal [Unknown]
